FAERS Safety Report 11405350 (Version 2)
Quarter: 2015Q3

REPORT INFORMATION
  Report Type: Spontaneous
  Country: US (occurrence: US)
  Receive Date: 20150821
  Receipt Date: 20150903
  Transmission Date: 20151125
  Serious: Yes (Other)
  Sender: FDA-Public Use
  Company Number: US-LPDUSPRD-20150622

PATIENT
  Age: 20 Year
  Sex: Female

DRUGS (1)
  1. INJECTAFER [Suspect]
     Active Substance: FERRIC CARBOXYMALTOSE
     Dosage: 750 MG/250ML NS
     Route: 042
     Dates: start: 20150123, end: 20150123

REACTIONS (6)
  - Off label use [Unknown]
  - Dyspnoea [Unknown]
  - Urticaria [Unknown]
  - Vision blurred [Unknown]
  - Chest discomfort [Unknown]
  - Pruritus [Unknown]

NARRATIVE: CASE EVENT DATE: 20150123
